FAERS Safety Report 10373921 (Version 1)
Quarter: 2014Q1

REPORT INFORMATION
  Report Type: Spontaneous
  Country: US (occurrence: None)
  Receive Date: 20140306
  Receipt Date: 20140306
  Transmission Date: 20141002
  Serious: Yes (Other)
  Sender: FDA-Public Use
  Company Number: 163-21880-13011822

PATIENT
  Age: 65 Year
  Sex: Female

DRUGS (16)
  1. REVLIMID (LENALIDOMIDE) (25 MILLIGRAM, CAPSULES) [Suspect]
     Indication: PLASMA CELL MYELOMA
     Route: 048
     Dates: start: 200805
  2. ASA (ACETYLSALICYLIC ACID) (ENTERIC-COATED TABLET) [Concomitant]
  3. COLACE (DOCUSATE SODIUM) [Concomitant]
  4. LEVOTHYROXINE SODIUM [Concomitant]
  5. LOVASTATIN (TABLETS) [Concomitant]
  6. LYRICA (PREGABALIN) (CAPSULES) [Concomitant]
  7. METOPROLOL TARTRATE (TABLETS) [Concomitant]
  8. NORVASC (AMLODIPINE BESILATE) (TABLETS) [Concomitant]
  9. OXCARBAZEPINE [Concomitant]
  10. DEXAMETHASONE (TABLETS) [Concomitant]
  11. ZOMETA (ZOLEDRONIC ACID) [Concomitant]
  12. PRILOSEC (OMEPRAZOLE) (CAPSULES) [Concomitant]
  13. SYNTHROID (LEVOTHYROXINE SODIUM) (TABLETS) [Concomitant]
  14. TRAMADOL (TABLETS) [Concomitant]
  15. TRILEPTAL (OXCARBAZEPINE) (TABLETS) [Concomitant]
  16. ACYCLOVIR (ACICLOVIR) [Concomitant]

REACTIONS (2)
  - Urinary tract infection [None]
  - Rash pruritic [None]
